FAERS Safety Report 12692091 (Version 1)
Quarter: 2016Q3

REPORT INFORMATION
  Report Type: Spontaneous
  Country: US (occurrence: US)
  Receive Date: 20160827
  Receipt Date: 20160827
  Transmission Date: 20161109
  Serious: No
  Sender: FDA-Public Use
  Company Number: US-009507513-1608USA005958

PATIENT
  Age: 29 Year
  Sex: Female
  Weight: 58.96 kg

DRUGS (1)
  1. NEXPLANON [Suspect]
     Active Substance: ETONOGESTREL
     Indication: CONTRACEPTION
     Dosage: DOSE/FREQUENCY: EVERY 3 YEARS/THERAPY ROUTE: LEFT ARM
     Route: 059
     Dates: start: 201601, end: 20160726

REACTIONS (3)
  - Herpes zoster [Unknown]
  - Musculoskeletal pain [Unknown]
  - Lymphadenopathy [Unknown]

NARRATIVE: CASE EVENT DATE: 201605
